FAERS Safety Report 8823991 (Version 1)
Quarter: 2012Q4

REPORT INFORMATION
  Report Type: 
  Country: US (occurrence: US)
  Receive Date: 20121003
  Receipt Date: 20121003
  Transmission Date: 20130627
  Serious: No
  Sender: FDA-Public Use
  Company Number: US-009507513-1210USA000873

PATIENT
  Sex: Female

DRUGS (5)
  1. JANUVIA [Suspect]
     Dosage: 100 mg, qd
  2. LYRICA [Suspect]
     Dosage: 75 mg, tid
  3. HUMALOG [Suspect]
     Dosage: 30 IU, tid
  4. METFORMIN HYDROCHLORIDE [Suspect]
     Dosage: 1000 mg, bid
  5. LANTUS [Suspect]
     Dosage: 52 IU, bid

REACTIONS (3)
  - Musculoskeletal pain [Unknown]
  - Drug ineffective [Unknown]
  - Pain in extremity [Unknown]
